FAERS Safety Report 7250434-5 (Version None)
Quarter: 2011Q1

REPORT INFORMATION
  Report Type: 
  Country: None (occurrence: None)
  Receive Date: 20110128
  Receipt Date: 20110117
  Transmission Date: 20110831
  Serious: Yes (Other)
  Sender: FDA-Public Use
  Company Number: NZ-WATSON-2011-00974

PATIENT
  Age: 40 Year

DRUGS (1)
  1. CIPROFLOXACIN HCL [Suspect]
     Indication: MENINGITIS
     Dosage: UNK

REACTIONS (3)
  - HALLUCINATION, VISUAL [None]
  - MYOCLONUS [None]
  - DISORIENTATION [None]
